FAERS Safety Report 9493852 (Version 2)
Quarter: 2013Q3

REPORT INFORMATION
  Report Type: Spontaneous
  Country: FR (occurrence: FR)
  Receive Date: 20130902
  Receipt Date: 20130927
  Transmission Date: 20140515
  Serious: Yes (Hospitalization)
  Sender: FDA-Public Use
  Company Number: FR-009507513-1309FRA000360

PATIENT
  Sex: Female

DRUGS (11)
  1. NORSET [Suspect]
     Indication: PRODUCT USED FOR UNKNOWN INDICATION
     Dosage: 15 MG, QD
     Route: 048
     Dates: start: 20130705
  2. LASILIX [Suspect]
     Indication: HYPERTENSION
     Dosage: 40 MG, QD
     Route: 048
  3. ATARAX (ALPRAZOLAM) [Suspect]
     Indication: AGITATION
     Dosage: 25 MG, TID
     Route: 048
     Dates: start: 20130704, end: 20130710
  4. TERBUTALINE SULFATE [Suspect]
     Dosage: 5 MG, QID
     Route: 055
     Dates: start: 20130628, end: 20130711
  5. IPRATROPIUM BROMIDE [Suspect]
     Dosage: 0.5 MG, QID
     Route: 055
     Dates: start: 20130628, end: 20130711
  6. TIAPRIDAL [Suspect]
     Indication: ABNORMAL BEHAVIOUR
     Dosage: 100 MG, TID
     Route: 048
     Dates: start: 20130703, end: 20130713
  7. IMOVANE [Suspect]
     Dosage: 7.5 MG, QD
     Route: 048
     Dates: start: 20130705
  8. AVLOCARDYL [Concomitant]
     Indication: HYPERTENSION
     Dosage: 160 MG, QD
     Route: 048
  9. PREVISCAN [Concomitant]
     Indication: PROPHYLAXIS
     Dosage: 5 MG, QD
     Route: 048
  10. TIAPRIDAL [Suspect]
     Indication: AGITATION
     Dosage: UNK
     Route: 048
     Dates: start: 20130629, end: 20130703
  11. INEXIUM [Concomitant]
     Indication: PROPHYLAXIS
     Dosage: 20 MG, QD
     Route: 048

REACTIONS (2)
  - Confusional state [Not Recovered/Not Resolved]
  - Abnormal behaviour [Not Recovered/Not Resolved]
